FAERS Safety Report 9513209 (Version 1)
Quarter: 2013Q1

REPORT INFORMATION
  Report Type: Spontaneous
  Country: US (occurrence: None)
  Receive Date: 20130305
  Receipt Date: 20130305
  Transmission Date: 20140127
  Serious: Yes (Other)
  Sender: FDA-Public Use
  Company Number: 163-21880-12102526

PATIENT
  Age: 72 Year
  Sex: Female
  Weight: 61.24 kg

DRUGS (12)
  1. REVLIMID [Suspect]
     Indication: PLASMA CELL MYELOMA
     Dosage: 14 IN 21 D
     Route: 048
     Dates: start: 20121001
  2. COUMADIN (WARFARIN SODIUM) (UNKNOWN) [Concomitant]
  3. DEXAMATHASONE (DEXAMETHASONE) (UNKNOWN) [Concomitant]
  4. FISH OIL (FISH OIL) (UNKNOWN) [Concomitant]
  5. FOSAMAX (ALENDRONATE SODIUM) (UNKNOWN) [Concomitant]
  6. MULTIVITAMINS (MULTIVITAMINS) (UNKNOWN) [Concomitant]
  7. OMEPRAZOLE (OMEPRAZOLE) (UNKNOWN) [Concomitant]
  8. SIMVASTATIN [Concomitant]
  9. VELCADE (UNKNOWN) [Concomitant]
  10. VITAMIN C [Concomitant]
  11. VITAMIN D (ERGOCALCIFEROL) (UNKNOWN) [Concomitant]
  12. ZOMETA (ZOLEDRONIC ACID) (UNKNOWN) [Concomitant]

REACTIONS (1)
  - Localised infection [None]
